FAERS Safety Report 6832475-2 (Version None)
Quarter: 2010Q3

REPORT INFORMATION
  Report Type: 
  Country: None (occurrence: None)
  Receive Date: 20100712
  Receipt Date: 20100628
  Transmission Date: 20110219
  Serious: Yes (Death, Hospitalization)
  Sender: FDA-Public Use
  Company Number: CZ-MYLANLABS-2010S1011504

PATIENT
  Age: 56 Year
  Sex: Female

DRUGS (10)
  1. CYCLOPHOSPHAMIDE [Suspect]
     Indication: NON-HODGKIN'S LYMPHOMA RECURRENT
     Route: 065
     Dates: start: 20000101
  2. DOXORUBICIN HCL [Suspect]
     Indication: NON-HODGKIN'S LYMPHOMA RECURRENT
     Route: 065
     Dates: start: 20000101
  3. VINCRISTINE [Suspect]
     Indication: NON-HODGKIN'S LYMPHOMA RECURRENT
     Route: 065
     Dates: start: 20000101
  4. PREDNISONE [Suspect]
     Indication: NON-HODGKIN'S LYMPHOMA RECURRENT
     Route: 065
     Dates: start: 20000101
  5. PREDNISONE [Suspect]
     Dosage: 60 MG/DAY
     Route: 065
  6. RITUXIMAB [Suspect]
     Indication: NON-HODGKIN'S LYMPHOMA RECURRENT
     Route: 065
     Dates: start: 20040101
  7. RITUXIMAB [Suspect]
     Route: 065
  8. IFOSFAMIDE [Suspect]
     Indication: NON-HODGKIN'S LYMPHOMA RECURRENT
     Route: 065
     Dates: start: 20040101
  9. CARBOPLATIN [Suspect]
     Indication: NON-HODGKIN'S LYMPHOMA RECURRENT
     Route: 065
  10. ETOPOSIDE [Suspect]
     Indication: NON-HODGKIN'S LYMPHOMA RECURRENT
     Route: 065
     Dates: start: 20040101

REACTIONS (3)
  - HEPATIC ENCEPHALOPATHY [None]
  - HEPATIC FAILURE [None]
  - HEPATITIS B [None]
